FAERS Safety Report 15935253 (Version 1)
Quarter: 2019Q1

REPORT INFORMATION
  Report Type: Spontaneous
  Country: CN (occurrence: CN)
  Receive Date: 20190207
  Receipt Date: 20190207
  Transmission Date: 20190417
  Serious: Yes (Hospitalization, Other)
  Sender: FDA-Public Use
  Company Number: CN-BAXTER-2019BAX002389

PATIENT
  Age: 57 Year
  Sex: Female
  Weight: 52.5 kg

DRUGS (12)
  1. 5% GLUCOSE  INJECTION [Suspect]
     Active Substance: DEXTROSE
     Indication: NEOPLASM MALIGNANT
  2. 0.9% SODIUM CHLORIDE INJECTION [Suspect]
     Active Substance: SODIUM CHLORIDE
     Indication: MEDICATION DILUTION
     Dosage: DILUTED WITH DOCETAXEL 120 MG
     Route: 041
     Dates: start: 20181120, end: 20181120
  3. 5% GLUCOSE  INJECTION [Suspect]
     Active Substance: DEXTROSE
     Indication: PREOPERATIVE CARE
  4. DOCETAXEL. [Suspect]
     Active Substance: DOCETAXEL
     Indication: PREOPERATIVE CARE
     Dosage: DILUTED WITH 250 ML OF SODIUM CHLORIDE
     Route: 041
     Dates: start: 20181120, end: 20181120
  5. EPIRUBICIN [Suspect]
     Active Substance: EPIRUBICIN
     Indication: PREOPERATIVE CARE
     Dosage: DILUTED EPIRUBICIN 140 MG WITH 100 ML OF 5 % GLUCOSE SOLUTION
     Route: 041
     Dates: start: 20181120, end: 20181120
  6. EPIRUBICIN [Suspect]
     Active Substance: EPIRUBICIN
     Indication: NEOPLASM MALIGNANT
  7. ENDOXAN [Suspect]
     Active Substance: CYCLOPHOSPHAMIDE
     Indication: NEOPLASM MALIGNANT
     Dosage: DOSE RE-INTRODUCED
     Route: 041
  8. 5% GLUCOSE  INJECTION [Suspect]
     Active Substance: DEXTROSE
     Indication: MEDICATION DILUTION
     Dosage: DILUTED WITH EPIRUBICIN 140 MG
     Route: 041
     Dates: start: 20181120, end: 20181120
  9. ENDOXAN [Suspect]
     Active Substance: CYCLOPHOSPHAMIDE
     Indication: PREOPERATIVE CARE
     Dosage: DILUTED WITH 100 ML OF SODIUM CHLORIDE
     Route: 041
     Dates: start: 20181120, end: 20181120
  10. 0.9% SODIUM CHLORIDE INJECTION [Suspect]
     Active Substance: SODIUM CHLORIDE
     Indication: PREOPERATIVE CARE
     Dosage: DILUTED WITH CYCLOPHOSPHAMIDE 0.8 G
     Route: 041
     Dates: start: 20181120, end: 20181120
  11. 0.9% SODIUM CHLORIDE INJECTION [Suspect]
     Active Substance: SODIUM CHLORIDE
     Indication: NEOPLASM MALIGNANT
     Dosage: DOSE-REINTRODUCED
     Route: 041
  12. DOCETAXEL. [Suspect]
     Active Substance: DOCETAXEL
     Indication: NEOPLASM MALIGNANT
     Dosage: DOSE-REINTRODUCED
     Route: 041

REACTIONS (2)
  - Bone marrow failure [Recovering/Resolving]
  - White blood cell count decreased [Recovering/Resolving]

NARRATIVE: CASE EVENT DATE: 20181127
